FAERS Safety Report 16804285 (Version 1)
Quarter: 2019Q3

REPORT INFORMATION
  Report Type: Report from Study
  Country: CN (occurrence: CN)
  Receive Date: 20190913
  Receipt Date: 20190913
  Transmission Date: 20191005
  Serious: Yes (Death)
  Sender: FDA-Public Use
  Company Number: CN-ROCHE-2406601

PATIENT

DRUGS (3)
  1. 5-FU [FLUOROURACIL] [Suspect]
     Active Substance: FLUOROURACIL
     Indication: METASTATIC GASTRIC CANCER
     Dosage: 1200 MG/M2 CONTINUOUS INFUSION OVER 24 H ON DAYS 1 AND 2 OF EACH CYCLE
     Route: 040
  2. TEGAFUR [Suspect]
     Active Substance: TEGAFUR
     Indication: METASTATIC GASTRIC CANCER
     Dosage: ON DAYS 1-14 OF EACH CYCLE
     Route: 048
  3. CAPECITABINE. [Suspect]
     Active Substance: CAPECITABINE
     Indication: METASTATIC GASTRIC CANCER
     Dosage: DAYS 1-14 OF EACH CYCLE
     Route: 048

REACTIONS (10)
  - Cardiac failure [Fatal]
  - Palpitations [Unknown]
  - Ventricular extrasystoles [Unknown]
  - Electrocardiogram ST-T segment abnormal [Unknown]
  - Atrial fibrillation [Fatal]
  - Electrocardiogram QT prolonged [Fatal]
  - Sinus arrhythmia [Unknown]
  - Acute myocardial infarction [Fatal]
  - Atrioventricular block [Unknown]
  - Chest pain [Fatal]
